FAERS Safety Report 10216139 (Version 1)
Quarter: 2014Q2

REPORT INFORMATION
  Report Type: Spontaneous
  Country: US (occurrence: US)
  Receive Date: 20140604
  Receipt Date: 20140604
  Transmission Date: 20141212
  Serious: No
  Sender: FDA-Public Use
  Company Number: US-ENDO PHARMACEUTICALS INC.-SPLN20140015

PATIENT
  Age: 11 Year
  Sex: Female
  Weight: 47.67 kg

DRUGS (1)
  1. SUPPRELIN LA [Suspect]
     Indication: PRECOCIOUS PUBERTY
     Route: 058
     Dates: start: 2007, end: 201311

REACTIONS (2)
  - Hypersomnia [Not Recovered/Not Resolved]
  - Mood swings [Not Recovered/Not Resolved]
